FAERS Safety Report 5134405-0 (Version None)
Quarter: 2006Q4

REPORT INFORMATION
  Report Type: 
  Country: None (occurrence: None)
  Receive Date: 20061025
  Receipt Date: 20061015
  Transmission Date: 20070319
  Serious: Yes (Other)
  Sender: FDA-Public Use
  Company Number: HQWYE435502OCT06

PATIENT
  Sex: Male
  Weight: 70 kg

DRUGS (12)
  1. ENBREL [Suspect]
     Indication: RHEUMATOID ARTHRITIS
     Route: 058
     Dates: start: 20051220, end: 20060123
  2. PREDNISOLONE [Concomitant]
     Dosage: UNKNOWN
     Route: 048
  3. LOXONIN [Concomitant]
     Dosage: UNKNOWN
     Route: 048
  4. ZANTAC [Concomitant]
     Dosage: UNKNOWN
     Route: 048
  5. BACTRIM [Concomitant]
     Dosage: UNKNOWN
     Route: 048
  6. GLAKAY [Concomitant]
     Dosage: UNKNOWN
     Route: 048
  7. ALFAROL [Concomitant]
     Dosage: UNKNOWN
     Route: 048
  8. ADALAT [Concomitant]
     Dosage: UNKNOWN
     Route: 048
  9. STARLIX [Concomitant]
     Dosage: UNKNOWN
     Route: 048
  10. LENDORMIN [Concomitant]
     Dosage: UNKNOWN
     Route: 048
  11. BREDININ [Concomitant]
     Indication: RHEUMATOID ARTHRITIS
     Dosage: UNKNOWN
     Route: 048
  12. BLOPRESS [Concomitant]
     Dosage: UNKNOWN
     Route: 048

REACTIONS (1)
  - LOSS OF CONSCIOUSNESS [None]
